FAERS Safety Report 22264442 (Version 1)
Quarter: 2023Q2

REPORT INFORMATION
  Report Type: Spontaneous
  Country: US (occurrence: US)
  Receive Date: 20230428
  Receipt Date: 20230428
  Transmission Date: 20230721
  Serious: No
  Sender: FDA-Public Use
  Company Number: US-BRISTOL-MYERS SQUIBB COMPANY-2023-060363

PATIENT
  Age: 59 Year
  Sex: Female

DRUGS (3)
  1. ZEPOSIA [Suspect]
     Active Substance: OZANIMOD HYDROCHLORIDE
     Indication: Multiple sclerosis
     Dosage: FREQUENCY: TAKE 0.23 MG BY MOUTH 1 TIME A DAY FOR 4 DAYS
     Route: 048
  2. ZEPOSIA [Suspect]
     Active Substance: OZANIMOD HYDROCHLORIDE
     Dosage: FREQUENCY:  TAKE 0.46 MG 1 TIME A DAY FOR 3 DAYS.
     Route: 048
  3. ZEPOSIA [Suspect]
     Active Substance: OZANIMOD HYDROCHLORIDE
     Dosage: FREQUENCY:  TAKE 0.92 MG 1 TIME A DAY THEREAFTER.
     Route: 048

REACTIONS (1)
  - Illness [Unknown]
